FAERS Safety Report 8567736-2 (Version None)
Quarter: 2012Q3

REPORT INFORMATION
  Report Type: 
  Country: None (occurrence: None)
  Receive Date: 20120803
  Receipt Date: 20120720
  Transmission Date: 20120928
  Serious: No
  Sender: FDA-Public Use
  Company Number: US-B.I. PHARMACEUTICALS,INC./RIDGEFIELD-2012-BP-16244BP

PATIENT
  Sex: Male

DRUGS (2)
  1. PRADAXA [Suspect]
     Route: 048
     Dates: start: 20120709
  2. PRADAXA [Suspect]
     Indication: ATRIAL FIBRILLATION
     Dosage: 300 MG
     Route: 048
     Dates: start: 20120705, end: 20120707

REACTIONS (1)
  - OEDEMA PERIPHERAL [None]
